FAERS Safety Report 4562294-1 (Version None)
Quarter: 2005Q1

REPORT INFORMATION
  Report Type: 
  Country: None (occurrence: None)
  Receive Date: 20050121
  Receipt Date: 20050111
  Transmission Date: 20050727
  Serious: Yes (Other)
  Sender: FDA-Public Use
  Company Number: 2005012110

PATIENT
  Age: 73 Year
  Sex: Male
  Weight: 86.1834 kg

DRUGS (1)
  1. VIAGRA [Suspect]
     Indication: ILL-DEFINED DISORDER
     Dosage: AS NEEDED, ORAL
     Route: 048

REACTIONS (4)
  - DEAFNESS [None]
  - DRUG INEFFECTIVE [None]
  - MONARTHRITIS [None]
  - POLLAKIURIA [None]
